FAERS Safety Report 21654212 (Version 1)
Quarter: 2022Q4

REPORT INFORMATION
  Report Type: Spontaneous
  Country: AT (occurrence: AT)
  Receive Date: 20221129
  Receipt Date: 20221129
  Transmission Date: 20230113
  Serious: Yes (Other)
  Sender: FDA-Public Use
  Company Number: AT-ENDO PHARMACEUTICALS INC-2022-006418

PATIENT
  Age: 75 Year
  Sex: Male
  Weight: 100 kg

DRUGS (1)
  1. AVEED [Suspect]
     Active Substance: TESTOSTERONE UNDECANOATE
     Indication: Product used for unknown indication
     Dosage: 1 DF, UNKNOWN
     Route: 065
     Dates: start: 20220908

REACTIONS (6)
  - Pain [Recovered/Resolved]
  - Throat irritation [Recovered/Resolved]
  - Throat clearing [Recovered/Resolved]
  - Choking sensation [Recovered/Resolved]
  - Microembolism [Recovered/Resolved]
  - Throat tightness [Recovered/Resolved]

NARRATIVE: CASE EVENT DATE: 20220908
